FAERS Safety Report 24143222 (Version 1)
Quarter: 2024Q3

REPORT INFORMATION
  Report Type: Spontaneous
  Country: US (occurrence: None)
  Receive Date: 20240726
  Receipt Date: 20240726
  Transmission Date: 20241016
  Serious: No
  Sender: ASTRAZENECA
  Company Number: 2024A165669

PATIENT

DRUGS (1)
  1. TEZSPIRE [Suspect]
     Active Substance: TEZEPELUMAB-EKKO

REACTIONS (6)
  - Vocal cord disorder [Unknown]
  - Back pain [Unknown]
  - Delirium [Unknown]
  - Dizziness [Unknown]
  - Tremor [Unknown]
  - Drug ineffective [Unknown]
